FAERS Safety Report 4308317-6 (Version None)
Quarter: 2004Q1

REPORT INFORMATION
  Report Type: 
  Country: None (occurrence: None)
  Receive Date: 20040225
  Receipt Date: 20031007
  Transmission Date: 20041129
  Serious: Yes (Other)
  Sender: FDA-Public Use
  Company Number: WAES 0310USA01080

PATIENT
  Age: 40 Year
  Sex: Female

DRUGS (1)
  1. ZOCOR [Suspect]
     Dosage: PO
     Route: 048

REACTIONS (2)
  - ADVERSE DRUG REACTION [None]
  - BLOOD CREATINE PHOSPHOKINASE INCREASED [None]
